FAERS Safety Report 18448411 (Version 1)
Quarter: 2020Q4

REPORT INFORMATION
  Report Type: Report from Study
  Country: IT (occurrence: IT)
  Receive Date: 20201031
  Receipt Date: 20201031
  Transmission Date: 20210114
  Serious: Yes (Other)
  Sender: FDA-Public Use
  Company Number: IT-ACCORD-206935

PATIENT
  Age: 92 Year
  Sex: Female

DRUGS (7)
  1. FOLINA [Concomitant]
  2. BISOPROLOL [Concomitant]
     Active Substance: BISOPROLOL
     Indication: HYPERTENSION
  3. METHOTREXATE. [Suspect]
     Active Substance: METHOTREXATE
     Indication: POLYMYALGIA RHEUMATICA
  4. BINOSTO [Concomitant]
     Active Substance: ALENDRONATE SODIUM
     Indication: OSTEOPENIA
     Dosage: STRENGTH:70MG
  5. ENBREL [Suspect]
     Active Substance: ETANERCEPT
     Indication: POLYMYALGIA RHEUMATICA
  6. TEVETENZ [Concomitant]
     Active Substance: EPROSARTAN MESYLATE
     Indication: HYPERTENSION
  7. CACIT [Concomitant]

REACTIONS (2)
  - Coronavirus infection [Recovering/Resolving]
  - Pyrexia [Recovering/Resolving]
